FAERS Safety Report 7458040-4 (Version None)
Quarter: 2011Q2

REPORT INFORMATION
  Report Type: 
  Country: None (occurrence: None)
  Receive Date: 20110503
  Receipt Date: 20110503
  Transmission Date: 20111010
  Serious: Yes (Disabling, Other)
  Sender: FDA-Public Use
  Company Number: None

PATIENT
  Age: 50 Year
  Sex: Male
  Weight: 87.9978 kg

DRUGS (2)
  1. LEVAQUIN [Suspect]
     Dosage: 1 PER DAY PO
     Route: 048
  2. LEVAQUIN [Suspect]
     Indication: PNEUMONIA
     Dosage: 1 PER DAY PO
     Route: 048

REACTIONS (10)
  - INSOMNIA [None]
  - ABDOMINAL DISCOMFORT [None]
  - PAIN IN EXTREMITY [None]
  - FATIGUE [None]
  - PAIN [None]
  - JOINT CREPITATION [None]
  - TINNITUS [None]
  - COORDINATION ABNORMAL [None]
  - ARTHRALGIA [None]
  - HEARING IMPAIRED [None]
